FAERS Safety Report 6475798-1 (Version None)
Quarter: 2009Q4

REPORT INFORMATION
  Report Type: 
  Country: None (occurrence: None)
  Receive Date: 20091204
  Receipt Date: 20091125
  Transmission Date: 20100525
  Serious: Yes (Hospitalization, Disabling, Other)
  Sender: FDA-Public Use
  Company Number: JP-ELI_LILLY_AND_COMPANY-JP200902001579

PATIENT
  Sex: Female
  Weight: 70 kg

DRUGS (8)
  1. GEMZAR [Suspect]
     Indication: OVARIAN CANCER RECURRENT
     Dosage: 1500 MG, OTHER
     Route: 042
     Dates: start: 20080411, end: 20080801
  2. GEMZAR [Suspect]
     Dosage: 1000 MG, OTHER
     Route: 042
     Dates: start: 20080822, end: 20081219
  3. CARBOPLATIN [Concomitant]
     Indication: OVARIAN CANCER RECURRENT
     Dosage: 400 MG, OTHER
     Route: 042
     Dates: start: 20080411, end: 20080801
  4. VASOLAX [Concomitant]
     Route: 048
  5. PRIMPERAN /00041901/ [Concomitant]
     Route: 048
  6. LOXONIN [Concomitant]
     Route: 048
  7. SELBEX [Concomitant]
     Route: 048
  8. CALONAL [Concomitant]
     Route: 048

REACTIONS (6)
  - HAEMOLYTIC URAEMIC SYNDROME [None]
  - PLEURAL EFFUSION [None]
  - PLEURAL HAEMORRHAGE [None]
  - PRURITUS [None]
  - SHOCK HAEMORRHAGIC [None]
  - WHITE BLOOD CELL COUNT DECREASED [None]
